FAERS Safety Report 23507941 (Version 1)
Quarter: 2024Q1

REPORT INFORMATION
  Report Type: Spontaneous
  Country: US (occurrence: US)
  Receive Date: 20240209
  Receipt Date: 20240209
  Transmission Date: 20240409
  Serious: No
  Sender: FDA-Public Use
  Company Number: US-TARO PHARMACEUTICALS USA INC.-2023TAR00355

PATIENT

DRUGS (1)
  1. NYSTATIN AND TRIAMCINOLONE ACETONIDE [Suspect]
     Active Substance: NYSTATIN\TRIAMCINOLONE ACETONIDE
     Indication: Fungal infection
     Dosage: UNK
     Route: 065

REACTIONS (4)
  - Gastrointestinal pain [Recovering/Resolving]
  - Malaise [Recovering/Resolving]
  - Head discomfort [Recovering/Resolving]
  - Abdominal discomfort [Recovering/Resolving]
